FAERS Safety Report 25074651 (Version 1)
Quarter: 2025Q1

REPORT INFORMATION
  Report Type: Spontaneous
  Country: US (occurrence: US)
  Receive Date: 20250313
  Receipt Date: 20250313
  Transmission Date: 20250409
  Serious: Yes (Other)
  Sender: BAYER HEALTHCARE PHARMACEUTICALS INC.
  Company Number: US-BAYER-2025A032003

PATIENT
  Age: 77 Year
  Sex: Male

DRUGS (2)
  1. KERENDIA [Suspect]
     Active Substance: FINERENONE
  2. BACTRIM DS [Suspect]
     Active Substance: SULFAMETHOXAZOLE\TRIMETHOPRIM

REACTIONS (1)
  - Glomerular filtration rate decreased [Recovered/Resolved]

NARRATIVE: CASE EVENT DATE: 20241206
